FAERS Safety Report 8805672 (Version 2)
Quarter: 2014Q3

REPORT INFORMATION
  Report Type: Report from Study
  Country: US (occurrence: US)
  Receive Date: 20120924
  Receipt Date: 20140901
  Transmission Date: 20150326
  Serious: Yes (Death, Other)
  Sender: FDA-Public Use
  Company Number: US-ROCHE-1125609

PATIENT
  Age: 62 Year
  Sex: Male
  Weight: 138 kg

DRUGS (5)
  1. AVASTIN [Suspect]
     Active Substance: BEVACIZUMAB
     Indication: MALIGNANT RESPIRATORY TRACT NEOPLASM
     Dosage: RECEIVED ONLY 2 TREATMENTS
     Route: 065
     Dates: start: 20051011, end: 20051025
  2. CARBOPLATIN. [Concomitant]
     Active Substance: CARBOPLATIN
  3. AVASTIN [Suspect]
     Active Substance: BEVACIZUMAB
     Route: 042
  4. GEMZAR [Concomitant]
     Active Substance: GEMCITABINE HYDROCHLORIDE
  5. TAXOL [Concomitant]
     Active Substance: PACLITAXEL

REACTIONS (2)
  - Death [Fatal]
  - Haematological malignancy [Unknown]

NARRATIVE: CASE EVENT DATE: 20051227
